FAERS Safety Report 14029907 (Version 1)
Quarter: 2017Q3

REPORT INFORMATION
  Report Type: Spontaneous
  Country: US (occurrence: US)
  Receive Date: 20170930
  Receipt Date: 20170930
  Transmission Date: 20171128
  Serious: No
  Sender: FDA-Public Use
  Company Number: US-SA-2017SA113446

PATIENT
  Age: 63 Year
  Sex: Female

DRUGS (12)
  1. AUBAGIO [Suspect]
     Active Substance: TERIFLUNOMIDE
     Indication: MULTIPLE SCLEROSIS
     Route: 048
     Dates: start: 20170609
  2. VITAMIN D3 [Concomitant]
     Active Substance: CHOLECALCIFEROL
  3. COQ10 [Concomitant]
     Active Substance: UBIDECARENONE
  4. SYNTHROID [Concomitant]
     Active Substance: LEVOTHYROXINE SODIUM
  5. CRANBERRY. [Concomitant]
     Active Substance: CRANBERRY
  6. FISH OIL [Concomitant]
     Active Substance: FISH OIL
  7. STOOL SOFTENER (DOCUSATE) [Concomitant]
     Active Substance: DOCUSATE
  8. ASPIRIN. [Concomitant]
     Active Substance: ASPIRIN
     Dosage: ENTERIC COATED
     Route: 065
  9. METAMUCIL [Concomitant]
     Active Substance: PLANTAGO SEED
  10. PRILOSEC [Concomitant]
     Active Substance: OMEPRAZOLE MAGNESIUM
  11. FENOFIBRATE. [Concomitant]
     Active Substance: FENOFIBRATE
  12. MACRODANTIN [Concomitant]
     Active Substance: NITROFURANTOIN

REACTIONS (5)
  - Abdominal discomfort [Unknown]
  - Diarrhoea [Unknown]
  - Abdominal pain lower [Unknown]
  - Weight decreased [Unknown]
  - Cystitis [Unknown]

NARRATIVE: CASE EVENT DATE: 2017
